FAERS Safety Report 8534735-6 (Version None)
Quarter: 2012Q3

REPORT INFORMATION
  Report Type: 
  Country: None (occurrence: None)
  Receive Date: 20120724
  Receipt Date: 20120705
  Transmission Date: 20120928
  Serious: Yes (Other)
  Sender: FDA-Public Use
  Company Number: JP-GLAXOSMITHKLINE-B0813792A

PATIENT
  Sex: Female
  Weight: 58 kg

DRUGS (13)
  1. PAXIL [Suspect]
     Indication: DEPRESSION
     Dosage: 12.5MG PER DAY
     Route: 048
     Dates: start: 20120628
  2. LENDORMIN [Suspect]
     Indication: INSOMNIA
     Dosage: 1IUAX PER DAY
     Route: 048
     Dates: start: 20120515, end: 20120629
  3. URINORM [Concomitant]
     Indication: HYPERURICAEMIA
     Dosage: 2IUAX PER DAY
     Route: 048
     Dates: end: 20120710
  4. FERROUS CITRATE [Concomitant]
     Indication: IRON DEFICIENCY ANAEMIA
     Dosage: 2IUAX PER DAY
     Route: 048
  5. TERIPARATIDE [Concomitant]
     Indication: OSTEOPOROSIS
     Dosage: 1IUAX PER DAY
     Route: 058
     Dates: start: 20120419
  6. PLAVIX [Concomitant]
     Indication: CEREBRAL INFARCTION
     Dosage: 2IUAX PER DAY
     Route: 048
     Dates: start: 20040101
  7. ACETAMINOPHEN [Concomitant]
     Indication: HEADACHE
     Route: 048
     Dates: start: 20111006
  8. FUROSEMIDE [Concomitant]
     Indication: RENAL FAILURE CHRONIC
     Dosage: 1IUAX PER DAY
     Route: 048
  9. VESICARE [Concomitant]
     Indication: CYSTITIS
     Dosage: 1IUAX PER DAY
     Route: 048
     Dates: start: 20120531
  10. MAGMITT [Concomitant]
     Indication: CONSTIPATION
     Dosage: 3IUAX PER DAY
     Route: 048
  11. CEPHADOL [Concomitant]
     Indication: DIZZINESS
     Dosage: 3IUAX PER DAY
     Route: 048
  12. GASMOTIN [Concomitant]
     Indication: CONSTIPATION
     Dosage: 3IUAX PER DAY
     Route: 048
     Dates: start: 20100420
  13. LANSOPRAZOLE [Concomitant]
     Indication: GASTROOESOPHAGEAL REFLUX DISEASE
     Dosage: 1IUAX PER DAY
     Route: 048

REACTIONS (2)
  - DRUG INTERACTION [None]
  - HALLUCINATION [None]
